FAERS Safety Report 24610973 (Version 4)
Quarter: 2024Q4

REPORT INFORMATION
  Report Type: Report from Study
  Country: US (occurrence: US)
  Receive Date: 20241112
  Receipt Date: 20241219
  Transmission Date: 20250114
  Serious: Yes (Death, Life-Threatening, Hospitalization)
  Sender: INSMED
  Company Number: US-INSMED, INC.-2024-03953-US

PATIENT
  Sex: Female

DRUGS (2)
  1. ARIKAYCE [Suspect]
     Active Substance: AMIKACIN
     Indication: Product used for unknown indication
     Dosage: 590 MILLIGRAM, QD
     Route: 055
     Dates: start: 202409, end: 202409
  2. ARIKAYCE [Suspect]
     Active Substance: AMIKACIN
     Dosage: 590 MILLIGRAM, QOD
     Route: 055
     Dates: start: 202409, end: 202411

REACTIONS (9)
  - Death [Fatal]
  - Loss of consciousness [Unknown]
  - Oxygen saturation decreased [Unknown]
  - Bronchospasm [Unknown]
  - Idiopathic pulmonary fibrosis [Unknown]
  - Inflammation [Unknown]
  - Feeding disorder [Not Recovered/Not Resolved]
  - Heart rate increased [Unknown]
  - Dyspnoea [Not Recovered/Not Resolved]

NARRATIVE: CASE EVENT DATE: 20240101
